FAERS Safety Report 10161332 (Version 1)
Quarter: 2014Q2

REPORT INFORMATION
  Report Type: Spontaneous
  Country: MX (occurrence: MX)
  Receive Date: 20140509
  Receipt Date: 20140509
  Transmission Date: 20141212
  Serious: Yes (Death)
  Sender: FDA-Public Use
  Company Number: MX-ROCHE-1398273

PATIENT
  Age: 32 Year
  Sex: Female
  Weight: 56 kg

DRUGS (10)
  1. AVASTIN [Suspect]
     Indication: CERVIX CARCINOMA
     Route: 042
     Dates: start: 201311, end: 20140506
  2. PACLITAXEL [Suspect]
     Indication: CERVIX CARCINOMA
     Route: 042
     Dates: start: 201311, end: 20140506
  3. CARBOPLATIN [Suspect]
     Indication: CERVIX CARCINOMA
     Route: 042
     Dates: start: 201311, end: 20140506
  4. PREDNISONE [Concomitant]
     Route: 048
     Dates: end: 20140506
  5. CHLORPHENAMINE [Concomitant]
     Route: 048
     Dates: end: 20140506
  6. RANITIDINE [Concomitant]
     Route: 048
     Dates: end: 20140506
  7. EMEND [Concomitant]
     Route: 048
     Dates: end: 20140506
  8. EMEND [Concomitant]
     Dosage: PREVIOUS DOSAGE
     Route: 048
  9. MORPHINE [Concomitant]
     Route: 065
     Dates: end: 20140506
  10. NEULASTIM [Concomitant]
     Indication: CERVIX CARCINOMA
     Route: 058
     Dates: start: 201311, end: 20140506

REACTIONS (1)
  - Disease progression [Fatal]
